FAERS Safety Report 10994581 (Version 2)
Quarter: 2015Q3

REPORT INFORMATION
  Report Type: Spontaneous
  Country: US (occurrence: US)
  Receive Date: 20150407
  Receipt Date: 20150701
  Transmission Date: 20151125
  Serious: Yes (Hospitalization, Other)
  Sender: FDA-Public Use
  Company Number: US-BAYER-2015-098581

PATIENT
  Age: 18 Year
  Sex: Female
  Weight: 72.11 kg

DRUGS (1)
  1. MIRENA [Suspect]
     Active Substance: LEVONORGESTREL
     Indication: CONTRACEPTION
     Dosage: 20 MCG/24HR, CONT
     Route: 015
     Dates: start: 20090506, end: 20100215

REACTIONS (8)
  - Injury [None]
  - Medical device discomfort [None]
  - Device difficult to use [None]
  - Genital haemorrhage [None]
  - Device issue [None]
  - Pelvic pain [None]
  - Abdominal pain [None]
  - Embedded device [None]

NARRATIVE: CASE EVENT DATE: 20100203
